FAERS Safety Report 7552112-1 (Version None)
Quarter: 2011Q2

REPORT INFORMATION
  Report Type: 
  Country: None (occurrence: None)
  Receive Date: 20110616
  Receipt Date: 20110603
  Transmission Date: 20111010
  Serious: Yes (Other)
  Sender: FDA-Public Use
  Company Number: PHHY2011BR18308

PATIENT
  Age: 56 Year
  Sex: Female

DRUGS (4)
  1. RASILEZ [Suspect]
     Indication: HYPERTENSION
     Dosage: 300 MG, UNK
  2. RASILEZ [Suspect]
     Indication: DIABETES MELLITUS
  3. GALVUS MET [Suspect]
     Indication: DIABETES MELLITUS
     Dosage: 850 MG METFORMIN AND 50 MG VILDAGLIPTIN
  4. EXFORGE [Suspect]
     Indication: HYPERTENSION
     Dosage: 320 MG VALSARTAN AND 5 MG AMLODIPINE

REACTIONS (3)
  - GASTRITIS EROSIVE [None]
  - WRONG TECHNIQUE IN DRUG USAGE PROCESS [None]
  - DYSPHAGIA [None]
